FAERS Safety Report 7740488-1 (Version None)
Quarter: 2011Q3

REPORT INFORMATION
  Report Type: 
  Country: None (occurrence: None)
  Receive Date: 20110909
  Receipt Date: 20110815
  Transmission Date: 20111222
  Serious: No
  Sender: FDA-Public Use
  Company Number: US-BAYER-2011-073891

PATIENT
  Sex: Female

DRUGS (1)
  1. TRI-LEVLEN 28 [Suspect]

REACTIONS (3)
  - IRRITABILITY [None]
  - FEELING ABNORMAL [None]
  - THINKING ABNORMAL [None]
